FAERS Safety Report 21647371 (Version 1)
Quarter: 2022Q4

REPORT INFORMATION
  Report Type: Spontaneous
  Country: PT (occurrence: PT)
  Receive Date: 20221128
  Receipt Date: 20221128
  Transmission Date: 20230112
  Serious: Yes (Other)
  Sender: FDA-Public Use
  Company Number: None

PATIENT
  Age: 35 Year
  Sex: Female

DRUGS (11)
  1. CYCLOPHOSPHAMIDE [Suspect]
     Active Substance: CYCLOPHOSPHAMIDE
     Indication: Acute leukaemia
     Dosage: 600 MG/M2, ONCE A DAY, 300 MG/M2, BID CYCLICAL (12/12H, DAYS 1 TO 3 2 IN 1 D)
     Route: 065
     Dates: start: 201305, end: 201311
  2. MESNA [Suspect]
     Active Substance: MESNA
     Indication: Acute leukaemia
     Dosage: 600 MG/M2, CYCLIC (DAYS 1 TO 3)
     Route: 065
     Dates: start: 201305, end: 201311
  3. VINCRISTINE [Suspect]
     Active Substance: VINCRISTINE
     Indication: Acute leukaemia
     Dosage: 2 MG, CYCLIC (DAYS 4 AND 11)
     Route: 065
     Dates: start: 201305, end: 201311
  4. ADRIACIN [Suspect]
     Active Substance: DOXORUBICIN HYDROCHLORIDE
     Indication: Acute leukaemia
     Dosage: 50 MG/M2, CYCLICAL (DAYS 4 )
     Route: 065
     Dates: start: 201305, end: 201311
  5. ORGADRONE [Suspect]
     Active Substance: DEXAMETHASONE SODIUM PHOSPHATE
     Indication: Acute leukaemia
     Dosage: 40 MG, CYCLIC (DAYS 1 TO 4 AND DAYS 11 TO 14)
     Route: 065
     Dates: start: 201305, end: 201311
  6. METHYLPREDNISOLONE [Suspect]
     Active Substance: METHYLPREDNISOLONE
     Indication: Acute leukaemia
     Dosage: UNK
     Route: 065
  7. CYTARABINE [Suspect]
     Active Substance: CYTARABINE
     Indication: Acute leukaemia
     Dosage: 3000 MG/M2, CYCLIC (12/12H, DAYS 2 AND 3)
     Route: 065
     Dates: start: 201305, end: 201311
  8. CYTARABINE [Suspect]
     Active Substance: CYTARABINE
     Dosage: 100 MG, CYCLIC (DAYS 7 OR 8)
     Route: 037
     Dates: start: 201305, end: 201311
  9. LEUCOVORIN [Suspect]
     Active Substance: LEUCOVORIN
     Indication: Acute leukaemia
     Dosage: UNK
     Route: 065
  10. METHOTREXATE [Suspect]
     Active Substance: METHOTREXATE
     Indication: Acute leukaemia
     Dosage: 1000 MG/M2, CYCLIC (DAY 1)
     Route: 065
     Dates: start: 201305, end: 201311
  11. METHOTREXATE [Suspect]
     Active Substance: METHOTREXATE
     Dosage: 12 MG, CYCLIC (DAY 2)
     Route: 037
     Dates: start: 201305, end: 201311

REACTIONS (5)
  - Product use in unapproved indication [Unknown]
  - Off label use [Unknown]
  - Neoplasm recurrence [Unknown]
  - Febrile neutropenia [Unknown]
  - Mucosal inflammation [Unknown]

NARRATIVE: CASE EVENT DATE: 20130101
